FAERS Safety Report 18587477 (Version 1)
Quarter: 2020Q4

REPORT INFORMATION
  Report Type: Spontaneous
  Country: SA (occurrence: SA)
  Receive Date: 20201207
  Receipt Date: 20201207
  Transmission Date: 20210114
  Serious: Yes (Life-Threatening, Hospitalization)
  Sender: FDA-Public Use
  Company Number: SA-EPIC PHARMA LLC-2020EPC00364

PATIENT
  Age: 37 Year
  Sex: Female

DRUGS (2)
  1. AZITHROMYCIN ANHYDROUS. [Suspect]
     Active Substance: AZITHROMYCIN ANHYDROUS
     Indication: VIRAL PHARYNGITIS
     Dosage: 2 CAPSULES, ONCE
     Route: 065
  2. UNSPECIFIED BETA BLOCKER [Concomitant]
     Active Substance: UNSPECIFIED INGREDIENT
     Dosage: UNK UNK, AS NEEDED
     Route: 065

REACTIONS (5)
  - Electrocardiogram QT prolonged [Recovered/Resolved]
  - Torsade de pointes [Recovered/Resolved]
  - Ventricular tachycardia [Recovered/Resolved]
  - Left ventricular dysfunction [Recovered/Resolved]
  - Cardiac arrest [Recovered/Resolved]
